FAERS Safety Report 6056031-1 (Version None)
Quarter: 2009Q1

REPORT INFORMATION
  Report Type: 
  Country: None (occurrence: None)
  Receive Date: 20090128
  Receipt Date: 20090114
  Transmission Date: 20090719
  Serious: Yes (Hospitalization, Other)
  Sender: FDA-Public Use
  Company Number: US-ELI_LILLY_AND_COMPANY-US200901002257

PATIENT
  Sex: Female

DRUGS (4)
  1. FORTEO [Suspect]
     Dosage: UNK, UNK
     Dates: start: 20080901, end: 20090112
  2. TRAMADOL HCL [Concomitant]
     Indication: HIP FRACTURE
  3. MULTI-VITAMINS [Concomitant]
  4. MSM [Concomitant]

REACTIONS (9)
  - ABDOMINAL PAIN UPPER [None]
  - EATING DISORDER [None]
  - FATIGUE [None]
  - INJECTION SITE PAIN [None]
  - PAIN [None]
  - SLEEP DISORDER [None]
  - SOMNOLENCE [None]
  - SPEECH DISORDER [None]
  - TRANSIENT ISCHAEMIC ATTACK [None]
